FAERS Safety Report 6053330-4 (Version None)
Quarter: 2009Q1

REPORT INFORMATION
  Report Type: 
  Country: None (occurrence: None)
  Receive Date: 20090127
  Receipt Date: 20090123
  Transmission Date: 20090719
  Serious: Yes (Hospitalization)
  Sender: FDA-Public Use
  Company Number: B0551968A

PATIENT
  Age: 76 Year
  Sex: Male
  Weight: 88 kg

DRUGS (8)
  1. VALTREX [Suspect]
     Indication: HERPES ZOSTER
     Dosage: 1000MG THREE TIMES PER DAY
     Route: 048
     Dates: start: 20071023, end: 20071025
  2. ACYCLOVIR [Suspect]
     Route: 065
  3. ASPIRIN [Concomitant]
     Indication: ANGINA PECTORIS
     Dosage: 100MG PER DAY
     Route: 048
  4. ADALAT CC [Concomitant]
     Indication: HYPERTENSION
     Dosage: 40MG PER DAY
     Route: 048
  5. BLOPRESS [Concomitant]
     Indication: HYPERTENSION
     Dosage: 8MG PER DAY
     Route: 048
  6. MEVALOTIN [Concomitant]
     Dosage: 10MG PER DAY
     Route: 048
  7. UNKNOWN DRUG [Concomitant]
     Dosage: 100MG PER DAY
     Route: 048
  8. PURSENNID [Concomitant]
     Route: 048

REACTIONS (10)
  - ABNORMAL BEHAVIOUR [None]
  - ACTIVITIES OF DAILY LIVING IMPAIRED [None]
  - ALTERED STATE OF CONSCIOUSNESS [None]
  - AMNESIA [None]
  - BLOOD UREA INCREASED [None]
  - C-REACTIVE PROTEIN INCREASED [None]
  - ENCEPHALOPATHY [None]
  - EXTRAPYRAMIDAL DISORDER [None]
  - PSYCHIATRIC SYMPTOM [None]
  - RENAL FAILURE ACUTE [None]
